FAERS Safety Report 7088309-7 (Version None)
Quarter: 2010Q4

REPORT INFORMATION
  Report Type: 
  Country: None (occurrence: None)
  Receive Date: 20101028
  Receipt Date: 20101014
  Transmission Date: 20110411
  Serious: Yes (Other)
  Sender: FDA-Public Use
  Company Number: 2010P1002000

PATIENT
  Age: 10 Year

DRUGS (1)
  1. ROCURONIUM BROMIDE INJECTION 10 MG/ML, 5 ML VIAL (NO PREF. NAME) [Suspect]
     Indication: SURGERY
     Dosage: ; X1; IV
     Route: 042
     Dates: start: 20101007, end: 20101007

REACTIONS (2)
  - DRUG INEFFECTIVE [None]
  - PARALYSIS [None]
